FAERS Safety Report 14371250 (Version 2)
Quarter: 2018Q1

REPORT INFORMATION
  Report Type: Spontaneous
  Country: US (occurrence: US)
  Receive Date: 20180110
  Receipt Date: 20180112
  Transmission Date: 20180509
  Serious: No
  Sender: FDA-Public Use
  Company Number: US-PFIZER INC-2018011954

PATIENT
  Age: 61 Year
  Sex: Female
  Weight: 67.13 kg

DRUGS (1)
  1. ELETRIPTAN HBR [Suspect]
     Active Substance: ELETRIPTAN HYDROBROMIDE
     Indication: MIGRAINE
     Dosage: 40 MG, AS NEEDED
     Route: 048
     Dates: start: 2017, end: 2017

REACTIONS (4)
  - Malaise [Recovered/Resolved]
  - Drug ineffective [Unknown]
  - Eye disorder [Unknown]
  - Nausea [Recovering/Resolving]
